FAERS Safety Report 13965539 (Version 1)
Quarter: 2017Q3

REPORT INFORMATION
  Report Type: Spontaneous
  Country: US (occurrence: US)
  Receive Date: 20170913
  Receipt Date: 20170913
  Transmission Date: 20171128
  Serious: Yes (Other)
  Sender: FDA-Public Use
  Company Number: US-PFIZER INC-2017390657

PATIENT
  Age: 78 Year
  Sex: Female
  Weight: 65.77 kg

DRUGS (1)
  1. GABAPENTIN. [Suspect]
     Active Substance: GABAPENTIN
     Indication: NEUROPATHY PERIPHERAL
     Dates: end: 201706

REACTIONS (19)
  - Sunburn [Unknown]
  - Eyelid oedema [Unknown]
  - Dry throat [Unknown]
  - Vulvovaginal swelling [Unknown]
  - Anxiety [Unknown]
  - Rash [Not Recovered/Not Resolved]
  - Breast tenderness [Unknown]
  - Oral discomfort [Unknown]
  - Breast swelling [Unknown]
  - Erythema [Unknown]
  - Pruritus [Unknown]
  - Eye irritation [Unknown]
  - Dry mouth [Unknown]
  - Vulvovaginal pruritus [Unknown]
  - Anal pruritus [Unknown]
  - Sjogren^s syndrome [Unknown]
  - Lip swelling [Unknown]
  - Product use in unapproved indication [Unknown]
  - Feeling abnormal [Recovering/Resolving]

NARRATIVE: CASE EVENT DATE: 2017
